FAERS Safety Report 4440661-4 (Version None)
Quarter: 2004Q3

REPORT INFORMATION
  Report Type: 
  Country: None (occurrence: None)
  Receive Date: 20040728
  Receipt Date: 20040220
  Transmission Date: 20050211
  Serious: No
  Sender: FDA-Public Use
  Company Number: USA040259992

PATIENT
  Age: 37 Year
  Sex: Female

DRUGS (1)
  1. STRATTERA [Suspect]
     Indication: ATTENTION DEFICIT/HYPERACTIVITY DISORDER
     Dosage: 40 MG IN THE MORNING
     Dates: start: 20040203

REACTIONS (6)
  - DECREASED APPETITE [None]
  - DIZZINESS [None]
  - FEELING HOT AND COLD [None]
  - HOT FLUSH [None]
  - NAUSEA [None]
  - STOMACH DISCOMFORT [None]
